FAERS Safety Report 15749205 (Version 1)
Quarter: 2018Q4

REPORT INFORMATION
  Report Type: Other
  Country: NL (occurrence: NL)
  Receive Date: 20181221
  Receipt Date: 20181221
  Transmission Date: 20190205
  Serious: Yes (Hospitalization, Other)
  Sender: FDA-Public Use
  Company Number: NL-APOTEX-2018AP027798

PATIENT
  Age: 29 Year
  Sex: Female

DRUGS (1)
  1. QUETIAPINE. [Suspect]
     Active Substance: QUETIAPINE
     Indication: PRODUCT USED FOR UNKNOWN INDICATION
     Dosage: 2400 MG, SINGLE (8 TABLETS OF QUETIAPINE 300 MG (2400 MG) IN TOTAL)
     Route: 048

REACTIONS (5)
  - Coma scale abnormal [Unknown]
  - Delirium [Recovering/Resolving]
  - Intentional overdose [Unknown]
  - Poisoning [Unknown]
  - Sinus tachycardia [Unknown]
